FAERS Safety Report 7955858-6 (Version None)
Quarter: 2011Q4

REPORT INFORMATION
  Report Type: 
  Country: None (occurrence: None)
  Receive Date: 20111205
  Receipt Date: 20111128
  Transmission Date: 20120403
  Serious: No
  Sender: FDA-Public Use
  Company Number: US-BIOGENIDEC-2011BI041671

PATIENT
  Sex: Female

DRUGS (1)
  1. TYSABRI [Suspect]
     Indication: MULTIPLE SCLEROSIS
     Route: 042
     Dates: start: 20111027

REACTIONS (7)
  - ANXIETY [None]
  - DYSPNOEA [None]
  - ARTHRALGIA [None]
  - CHEST PAIN [None]
  - PAIN IN EXTREMITY [None]
  - CHEST DISCOMFORT [None]
  - HEADACHE [None]
